FAERS Safety Report 20438970 (Version 1)
Quarter: 2022Q1

REPORT INFORMATION
  Report Type: Other
  Country: US (occurrence: None)
  Receive Date: 20220207
  Receipt Date: 20220207
  Transmission Date: 20220423
  Serious: Yes (Hospitalization)
  Sender: FDA-Public Use
  Company Number: US-ROCHE-3011635

PATIENT
  Sex: Female
  Weight: 83.536 kg

DRUGS (1)
  1. OCREVUS [Suspect]
     Active Substance: OCRELIZUMAB
     Indication: Primary progressive multiple sclerosis
     Route: 065
     Dates: start: 20210722

REACTIONS (2)
  - Urinary tract infection [Recovered/Resolved]
  - Gait disturbance [Unknown]
